FAERS Safety Report 5844789-3 (Version None)
Quarter: 2008Q3

REPORT INFORMATION
  Report Type: 
  Country: None (occurrence: None)
  Receive Date: 20080812
  Receipt Date: 20080804
  Transmission Date: 20090109
  Serious: Yes (Other)
  Sender: FDA-Public Use
  Company Number: 2008SP015894

PATIENT
  Age: 68 Year
  Sex: Female
  Weight: 90 kg

DRUGS (2)
  1. TEMOZOLOMIDE [Suspect]
     Dosage: 150 MG/M2; PO
     Route: 048
     Dates: start: 20080521, end: 20080610
  2. TEMOZOLOMIDE [Suspect]
     Dosage: 150 MG/M2; PO
     Route: 048
     Dates: start: 20080312

REACTIONS (1)
  - LYMPHOPENIA [None]
